FAERS Safety Report 8988489 (Version 1)
Quarter: 2012Q4

REPORT INFORMATION
  Report Type: Spontaneous
  Country: US (occurrence: None)
  Receive Date: 20121224
  Receipt Date: 20121224
  Transmission Date: 20130627
  Serious: Yes (Other)
  Sender: FDA-Public Use
  Company Number: None

PATIENT
  Age: 87 Year
  Sex: Male
  Weight: 93.4 kg

DRUGS (1)
  1. PHENYLEPHRINE [Suspect]
     Dosage: 30 mcg/min/iv
     Route: 042

REACTIONS (1)
  - Infusion site reaction [None]
